FAERS Safety Report 14671094 (Version 1)
Quarter: 2018Q1

REPORT INFORMATION
  Report Type: Spontaneous
  Country: US (occurrence: US)
  Receive Date: 20180322
  Receipt Date: 20180322
  Transmission Date: 20180509
  Serious: No
  Sender: FDA-Public Use
  Company Number: None

PATIENT
  Age: 63 Year
  Sex: Male

DRUGS (9)
  1. METOPROLOL. [Concomitant]
     Active Substance: METOPROLOL
  2. LENALIDOMIDE [Concomitant]
     Active Substance: LENALIDOMIDE
  3. DEXAMETHASONE. [Concomitant]
     Active Substance: DEXAMETHASONE
  4. PRADAXAM [Concomitant]
  5. REVLIMID [Suspect]
     Active Substance: LENALIDOMIDE
     Indication: PLASMA CELL MYELOMA
     Dosage: FREQUENCY?DAILY FOR 21D/28D
     Route: 048
     Dates: start: 201709
  6. LISINOPRIL. [Concomitant]
     Active Substance: LISINOPRIL
  7. AMIODARONE [Concomitant]
     Active Substance: AMIODARONE
  8. ACYCLOVIR. [Concomitant]
     Active Substance: ACYCLOVIR
  9. SPIRONOLACTONE. [Concomitant]
     Active Substance: SPIRONOLACTONE

REACTIONS (3)
  - Cardiac failure congestive [None]
  - Hypotension [None]
  - Atrial fibrillation [None]

NARRATIVE: CASE EVENT DATE: 20180227
